FAERS Safety Report 20228336 (Version 1)
Quarter: 2021Q4

REPORT INFORMATION
  Report Type: Spontaneous
  Country: NL (occurrence: NL)
  Receive Date: 20211224
  Receipt Date: 20211224
  Transmission Date: 20220303
  Serious: Yes (Other)
  Sender: FDA-Public Use
  Company Number: None

PATIENT
  Age: 36 Year
  Sex: Female
  Weight: 78 kg

DRUGS (3)
  1. IVERMECTIN [Suspect]
     Active Substance: IVERMECTIN
     Indication: Acarodermatitis
     Dosage: 5 PIECES
     Dates: start: 20210619
  2. COVID-19 VACCINE NOS [Suspect]
     Active Substance: COVID-19 VACCINE NOS
     Indication: COVID-19 immunisation
     Dosage: 1 DOSAGE FORM
     Dates: start: 20210621
  3. DESLORATADINE [Concomitant]
     Active Substance: DESLORATADINE
     Dosage: SMELT TABLET, 5 MG (MILLIGRAM)

REACTIONS (7)
  - Fatigue [Recovering/Resolving]
  - Headache [Recovered/Resolved]
  - Arthralgia [Recovering/Resolving]
  - Injection site pain [Recovered/Resolved]
  - Nausea [Recovering/Resolving]
  - Vestibular neuronitis [Not Recovered/Not Resolved]
  - Malaise [Recovering/Resolving]

NARRATIVE: CASE EVENT DATE: 20210621
